FAERS Safety Report 24607524 (Version 1)
Quarter: 2024Q4

REPORT INFORMATION
  Report Type: Spontaneous
  Country: US (occurrence: US)
  Receive Date: 20241112
  Receipt Date: 20241112
  Transmission Date: 20250115
  Serious: Yes (Hospitalization)
  Sender: MACLEODS
  Company Number: US-MLMSERVICE-20241024-PI238127-00256-1

PATIENT

DRUGS (1)
  1. PANTOPRAZOLE [Suspect]
     Active Substance: PANTOPRAZOLE
     Indication: Product used for unknown indication
     Dosage: CHRONIC
     Route: 065

REACTIONS (3)
  - Pneumonia salmonella [Recovering/Resolving]
  - Empyema [Unknown]
  - Ascites [Unknown]
